FAERS Safety Report 14686081 (Version 1)
Quarter: 2018Q1

REPORT INFORMATION
  Report Type: Spontaneous
  Country: CN (occurrence: CN)
  Receive Date: 20180327
  Receipt Date: 20180327
  Transmission Date: 20180509
  Serious: Yes (Other)
  Sender: FDA-Public Use
  Company Number: CN-JNJFOC-20180333718

PATIENT
  Age: 7 Year
  Sex: Male
  Weight: 36.5 kg

DRUGS (2)
  1. TOPAMAX [Suspect]
     Active Substance: TOPIRAMATE
     Indication: EPILEPSY
     Dosage: DOSE: 2 (UNSPECIFIED UNIT)
     Route: 048
     Dates: start: 20170309, end: 20170515
  2. VALPROATE MAGNESIUM [Suspect]
     Active Substance: VALPROATE MAGNESIUM
     Indication: EPILEPSY
     Dosage: 1.25
     Route: 048
     Dates: start: 20170430, end: 20170601

REACTIONS (4)
  - Mental impairment [Recovering/Resolving]
  - Dementia [Recovering/Resolving]
  - Anhidrosis [Recovering/Resolving]
  - Somnolence [Recovering/Resolving]

NARRATIVE: CASE EVENT DATE: 20170507
